FAERS Safety Report 11309212 (Version 1)
Quarter: 2015Q3

REPORT INFORMATION
  Report Type: Spontaneous
  Country: CA (occurrence: CA)
  Receive Date: 20150724
  Receipt Date: 20150724
  Transmission Date: 20151125
  Serious: Yes (Life-Threatening)
  Sender: FDA-Public Use
  Company Number: CA-TEVA-580268ACC

PATIENT
  Age: 69 Year
  Sex: Female
  Weight: 115 kg

DRUGS (12)
  1. PLAVIX [Concomitant]
     Active Substance: CLOPIDOGREL BISULFATE
     Route: 065
  2. ALLOPURINOL. [Concomitant]
     Active Substance: ALLOPURINOL
     Route: 065
  3. SALBUTAMOL [Suspect]
     Active Substance: ALBUTEROL
     Indication: BRONCHOSPASM
     Route: 065
  4. AMLODIPINE [Concomitant]
     Active Substance: AMLODIPINE BESYLATE
     Route: 065
  5. METOPROLOL [Concomitant]
     Active Substance: METOPROLOL
     Route: 065
  6. MICARDIS [Concomitant]
     Active Substance: TELMISARTAN
     Route: 065
  7. COLCHICINE. [Concomitant]
     Active Substance: COLCHICINE
     Route: 065
  8. INSULIN [Concomitant]
     Active Substance: INSULIN NOS
     Route: 065
  9. LANSOPRAZOLE. [Concomitant]
     Active Substance: LANSOPRAZOLE
     Route: 065
  10. CRESTOR [Concomitant]
     Active Substance: ROSUVASTATIN CALCIUM
     Route: 065
  11. LASIX [Concomitant]
     Active Substance: FUROSEMIDE
     Route: 065
  12. TERAZOSIN [Concomitant]
     Active Substance: TERAZOSIN\TERAZOSIN HYDROCHLORIDE
     Route: 065

REACTIONS (3)
  - Product substitution issue [Recovered/Resolved]
  - Drug ineffective [Recovered/Resolved]
  - Asthma [Recovered/Resolved]
